FAERS Safety Report 20795814 (Version 2)
Quarter: 2022Q2

REPORT INFORMATION
  Report Type: Report from Study
  Country: US (occurrence: US)
  Receive Date: 20220506
  Receipt Date: 20220607
  Transmission Date: 20220721
  Serious: Yes (Hospitalization, Other)
  Sender: FDA-Public Use
  Company Number: US-CELGENE-USA-20220208455

PATIENT
  Age: 68 Year
  Sex: Female
  Weight: 86.182 kg

DRUGS (6)
  1. REVLIMID [Suspect]
     Active Substance: LENALIDOMIDE
     Indication: Plasma cell myeloma
     Dosage: 25 MG
     Route: 048
     Dates: start: 202111
  2. REVLIMID [Suspect]
     Active Substance: LENALIDOMIDE
     Route: 048
     Dates: start: 202111
  3. REVLIMID [Suspect]
     Active Substance: LENALIDOMIDE
     Route: 065
  4. REVLIMID [Suspect]
     Active Substance: LENALIDOMIDE
     Route: 065
  5. DEXAMETHASONE [Suspect]
     Active Substance: DEXAMETHASONE
     Indication: Plasma cell myeloma
     Route: 065
  6. GLIPIZIDE [Suspect]
     Active Substance: GLIPIZIDE
     Indication: Product used for unknown indication
     Route: 065

REACTIONS (10)
  - Small intestinal obstruction [Unknown]
  - Nausea [Unknown]
  - Muscle spasms [Unknown]
  - Ear infection [Unknown]
  - Blood glucose increased [Unknown]
  - Red blood cell count decreased [Unknown]
  - White blood cell count decreased [Unknown]
  - Blood glucose decreased [Unknown]
  - Thyroid disorder [Unknown]
  - Arthritis [Unknown]
